FAERS Safety Report 22278891 (Version 4)
Quarter: 2023Q2

REPORT INFORMATION
  Report Type: Spontaneous
  Country: US (occurrence: US)
  Receive Date: 20230503
  Receipt Date: 20230627
  Transmission Date: 20230722
  Serious: No
  Sender: FDA-Public Use
  Company Number: US-BIOGEN-2019BI00763271

PATIENT
  Age: 59 Year
  Sex: Female

DRUGS (10)
  1. TECFIDERA [Suspect]
     Active Substance: DIMETHYL FUMARATE
     Indication: Multiple sclerosis
     Dosage: MAINTENANCE DOSE
     Route: 050
     Dates: start: 20151217, end: 20220401
  2. PREGABALIN [Concomitant]
     Active Substance: PREGABALIN
     Route: 050
  3. SIMVASTATIN [Concomitant]
     Active Substance: SIMVASTATIN
     Route: 050
  4. METOPROLOL TARTRATE [Concomitant]
     Active Substance: METOPROLOL TARTRATE
     Route: 050
  5. ANASTROZOLE [Concomitant]
     Active Substance: ANASTROZOLE
     Route: 050
  6. ZYRTEC [Concomitant]
     Active Substance: CETIRIZINE HYDROCHLORIDE
     Route: 050
  7. DICLOFENAC SODIUM [Concomitant]
     Active Substance: DICLOFENAC SODIUM
     Route: 050
  8. LOSARTAN POTASSIUM/HYDROC [Concomitant]
     Dosage: 50-12.5 MG
     Route: 050
  9. ACETAMINOPHEN [Concomitant]
     Active Substance: ACETAMINOPHEN
     Route: 050
  10. FLONASE ALLERGY RELIEF [Concomitant]
     Active Substance: FLUTICASONE PROPIONATE
     Route: 050

REACTIONS (3)
  - Product dose omission issue [Unknown]
  - Flushing [Recovered/Resolved]
  - Hot flush [Recovered/Resolved]

NARRATIVE: CASE EVENT DATE: 20151217
